FAERS Safety Report 11540006 (Version 1)
Quarter: 2015Q3

REPORT INFORMATION
  Report Type: Spontaneous
  Country: AU (occurrence: AU)
  Receive Date: 20150923
  Receipt Date: 20150923
  Transmission Date: 20151125
  Serious: Yes (Hospitalization)
  Sender: FDA-Public Use
  Company Number: AU-MYLANLABS-2015M1032565

PATIENT

DRUGS (2)
  1. EPIPEN [Suspect]
     Active Substance: EPINEPHRINE
     Dosage: 300 ?G, UNK
     Dates: start: 20150915
  2. EPIPEN [Suspect]
     Active Substance: EPINEPHRINE
     Indication: ANGIOEDEMA
     Dosage: 300 ?G, UNK
     Dates: start: 20150915

REACTIONS (3)
  - Device failure [Recovered/Resolved]
  - Anaphylactic reaction [Recovered/Resolved]
  - Expired device used [Recovered/Resolved]

NARRATIVE: CASE EVENT DATE: 201509
